FAERS Safety Report 6421458-2 (Version None)
Quarter: 2009Q4

REPORT INFORMATION
  Report Type: 
  Country: None (occurrence: None)
  Receive Date: 20091030
  Receipt Date: 20091027
  Transmission Date: 20100525
  Serious: Yes (Death, Hospitalization)
  Sender: FDA-Public Use
  Company Number: GB-PFIZER INC-2009223219

PATIENT
  Age: 68 Year

DRUGS (8)
  1. DALTEPARIN SODIUM [Suspect]
     Indication: LUNG NEOPLASM MALIGNANT
     Dosage: UNK
     Dates: start: 20090312
  2. SPIRONOLACTONE [Suspect]
     Dosage: 25 MG, UNK
     Route: 048
     Dates: end: 20090602
  3. SALBUTAMOL [Concomitant]
     Dosage: 300 UG, UNK
     Route: 058
  4. METFORMIN [Concomitant]
     Dosage: 1 G, UNK
     Route: 048
  5. DEXAMETHASONE [Concomitant]
     Dosage: 2 MG, UNK
     Route: 048
  6. DICLOFENAC [Concomitant]
     Dosage: 150 MG, UNK
     Route: 048
  7. MST [Concomitant]
     Dosage: 120 MG, UNK
     Route: 048
  8. ORAMORPH SR [Concomitant]
     Dosage: 5 ML, UNK
     Route: 048

REACTIONS (2)
  - DEATH [None]
  - HYPERKALAEMIA [None]
